FAERS Safety Report 4384320-5 (Version None)
Quarter: 2004Q2

REPORT INFORMATION
  Report Type: 
  Country: None (occurrence: None)
  Receive Date: 20040618
  Receipt Date: 20040607
  Transmission Date: 20050107
  Serious: Yes (Hospitalization)
  Sender: FDA-Public Use
  Company Number: 04P-163-0263142-00

PATIENT
  Sex: Female

DRUGS (1)
  1. SYNTHROID [Suspect]
     Indication: THYROID DISORDER
     Dosage: PER ORAL
     Route: 048
     Dates: start: 20030101, end: 20040601

REACTIONS (2)
  - ATRIAL FIBRILLATION [None]
  - DRUG EXPOSURE DURING PREGNANCY [None]
